FAERS Safety Report 14789266 (Version 1)
Quarter: 2018Q2

REPORT INFORMATION
  Report Type: Spontaneous
  Country: DE (occurrence: DE)
  Receive Date: 20180423
  Receipt Date: 20180423
  Transmission Date: 20180711
  Serious: Yes (Other)
  Sender: FDA-Public Use
  Company Number: PHHY2018DE069034

PATIENT
  Age: 48 Year
  Sex: Female
  Weight: 62 kg

DRUGS (4)
  1. ARCOXIA [Interacting]
     Active Substance: ETORICOXIB
     Indication: INTERVERTEBRAL DISC DISORDER
     Dosage: 3 DF, QD (AM 2. TAG 3_)
     Route: 065
  2. NORFLEX [Interacting]
     Active Substance: ORPHENADRINE CITRATE
     Indication: PRODUCT USED FOR UNKNOWN INDICATION
     Dosage: 2 DF, UNK
     Route: 065
     Dates: start: 20170927, end: 20170929
  3. DEXAMETASON [Concomitant]
     Active Substance: DEXAMETHASONE
     Indication: PRODUCT USED FOR UNKNOWN INDICATION
     Route: 065
     Dates: start: 20170927, end: 20170930
  4. PANTOPRAZOL HEXAL [Suspect]
     Active Substance: PANTOPRAZOLE
     Indication: PROPHYLAXIS AGAINST GASTROINTESTINAL ULCER
     Dosage: 1 DF, UNK
     Route: 065
     Dates: start: 20170927, end: 20170929

REACTIONS (20)
  - Hot flush [Unknown]
  - Dysgeusia [Unknown]
  - Vision blurred [Unknown]
  - Hypoaesthesia [Unknown]
  - Asthenia [Unknown]
  - Parosmia [Unknown]
  - Heart rate increased [Unknown]
  - Irritable bowel syndrome [Unknown]
  - Arthralgia [Unknown]
  - Fatigue [Unknown]
  - Disorientation [Unknown]
  - Dry mouth [Unknown]
  - Dizziness [Unknown]
  - Disturbance in attention [Unknown]
  - Confusional state [Unknown]
  - Tremor [Unknown]
  - Haemorrhoids [Unknown]
  - Dyspnoea [Unknown]
  - Anxiety [Unknown]
  - Paraesthesia [Unknown]

NARRATIVE: CASE EVENT DATE: 20170930
